FAERS Safety Report 6817726-2 (Version None)
Quarter: 2010Q3

REPORT INFORMATION
  Report Type: 
  Country: None (occurrence: None)
  Receive Date: 20100706
  Receipt Date: 20100624
  Transmission Date: 20110219
  Serious: Yes (Other)
  Sender: FDA-Public Use
  Company Number: BR-PFIZER INC-2010078846

PATIENT
  Age: 77 Year
  Sex: Female
  Weight: 78 kg

DRUGS (4)
  1. XALATAN [Suspect]
     Indication: GLAUCOMA
     Dosage: 3 UG, 1X/DAY (ONE DROP IN EACH EYE)
     Route: 047
     Dates: start: 20100301
  2. CHONDROITIN/GLUCOSAMINE [Suspect]
     Indication: OSTEOARTHRITIS
     Dosage: UNK
     Dates: start: 20100501
  3. CALCIUM WITH VITAMIN D [Concomitant]
     Indication: OSTEOPOROSIS
     Dosage: UNK
  4. ALLEGRA [Concomitant]
     Indication: SINUSITIS
     Dosage: UNK

REACTIONS (6)
  - CATARACT [None]
  - ERYTHEMA OF EYELID [None]
  - HEADACHE [None]
  - OCULAR HYPERAEMIA [None]
  - OSTEOARTHRITIS [None]
  - XANTHOPSIA [None]
